FAERS Safety Report 9795107 (Version 1)
Quarter: 2014Q1

REPORT INFORMATION
  Report Type: Report from Study
  Country: US (occurrence: US)
  Receive Date: 20140103
  Receipt Date: 20140103
  Transmission Date: 20141002
  Serious: Yes (Other)
  Sender: FDA-Public Use
  Company Number: US-ROCHE-1327778

PATIENT
  Age: 76 Year
  Sex: Male

DRUGS (9)
  1. LUCENTIS [Suspect]
     Indication: MACULAR DEGENERATION
     Dosage: BOTH EYES, STOPPED RIGHT EYE
     Route: 065
  2. AVASTIN [Suspect]
     Indication: MACULAR DEGENERATION
     Dosage: BOTH EYES
     Route: 031
  3. CARVEDILOL [Concomitant]
     Route: 065
  4. ZETIA [Concomitant]
     Route: 065
  5. VITAMIN C [Concomitant]
     Route: 065
  6. CARTIA (UNITED STATES) [Concomitant]
     Route: 065
  7. ASPIRIN [Concomitant]
     Dosage: BABY
     Route: 065
  8. TIMOLOL [Concomitant]
  9. ALPHAGAN [Concomitant]

REACTIONS (4)
  - Myocardial infarction [Recovered/Resolved]
  - Blindness [Not Recovered/Not Resolved]
  - Visual acuity reduced [Not Recovered/Not Resolved]
  - Visual impairment [Not Recovered/Not Resolved]
